FAERS Safety Report 4464274-3 (Version None)
Quarter: 2004Q4

REPORT INFORMATION
  Report Type: 
  Country: None (occurrence: None)
  Receive Date: 20041001
  Receipt Date: 20040428
  Transmission Date: 20050328
  Serious: Yes (Other)
  Sender: FDA-Public Use
  Company Number: PHFR2004GB01934

PATIENT
  Age: 31 Year
  Sex: Male

DRUGS (5)
  1. CLOZARIL [Suspect]
     Indication: SCHIZOPHRENIA
     Route: 048
     Dates: start: 20020115, end: 20020601
  2. CLOZARIL [Suspect]
     Dosage: EXTRA 100MG DOSE GIVEN
     Route: 048
  3. CLOZARIL [Suspect]
     Dosage: 500MG/DAY
     Route: 048
     Dates: start: 20030828, end: 20040316
  4. VALPROATE SODIUM [Concomitant]
     Dosage: 400 MG, BID
     Route: 065
  5. FLUOXETINE [Suspect]
     Dosage: 20MG/DAY
     Route: 048
     Dates: end: 20040326

REACTIONS (11)
  - AKATHISIA [None]
  - BLOOD PRESSURE INCREASED [None]
  - CEREBRAL VENTRICLE DILATATION [None]
  - COMPUTERISED TOMOGRAM ABNORMAL [None]
  - CONVULSION [None]
  - DRUG INTERACTION [None]
  - DRUG LEVEL INCREASED [None]
  - EPILEPSY [None]
  - GRAND MAL CONVULSION [None]
  - HEART RATE INCREASED [None]
  - MEDICATION ERROR [None]
